FAERS Safety Report 17468808 (Version 1)
Quarter: 2020Q1

REPORT INFORMATION
  Report Type: Report from Study
  Country: DO (occurrence: DO)
  Receive Date: 20200227
  Receipt Date: 20200227
  Transmission Date: 20200409
  Serious: Yes (Other)
  Sender: FDA-Public Use
  Company Number: NVSC2020DO055275

PATIENT
  Age: 55 Year
  Sex: Male

DRUGS (2)
  1. VYMADA [Suspect]
     Active Substance: SACUBITRIL\VALSARTAN
     Indication: PRODUCT USED FOR UNKNOWN INDICATION
     Dosage: 100 MG, UNKNOWN
     Route: 065
     Dates: start: 202001
  2. LANX [Suspect]
     Active Substance: SPIRONOLACTONE
     Indication: URINARY RETENTION
     Dosage: UNK UNK, QHS
     Route: 065

REACTIONS (4)
  - Nocturia [Unknown]
  - Cardiomegaly [Unknown]
  - Somnolence [Unknown]
  - Sleep deficit [Unknown]

NARRATIVE: CASE EVENT DATE: 202001
